FAERS Safety Report 8522326-2 (Version None)
Quarter: 2012Q3

REPORT INFORMATION
  Report Type: 
  Country: None (occurrence: None)
  Receive Date: 20120719
  Receipt Date: 20120706
  Transmission Date: 20120928
  Serious: Yes (Death)
  Sender: FDA-Public Use
  Company Number: US-WATSON-2012-04915

PATIENT
  Sex: Male

DRUGS (1)
  1. FENTANYL-100 [Suspect]
     Indication: PAIN
     Dosage: UNK
     Route: 062
     Dates: end: 20090314

REACTIONS (3)
  - TOXICITY TO VARIOUS AGENTS [None]
  - OVERDOSE [None]
  - PRODUCT DISTRIBUTION ISSUE [None]
